FAERS Safety Report 24239929 (Version 1)
Quarter: 2024Q3

REPORT INFORMATION
  Report Type: Spontaneous
  Country: US (occurrence: US)
  Receive Date: 20240822
  Receipt Date: 20240822
  Transmission Date: 20241016
  Serious: No
  Sender: SUNOVION
  Company Number: US-MYOVANT SCIENCES GMBH-2024MYSCI0300791

PATIENT

DRUGS (5)
  1. ORGOVYX [Suspect]
     Active Substance: RELUGOLIX
     Indication: Prostate cancer
     Dosage: 120 MILLIGRAM, QD
     Route: 048
  2. ENZALUTAMIDE [Suspect]
     Active Substance: ENZALUTAMIDE
     Indication: Prostate cancer stage IV
     Dosage: 160 MILLIGRAM, UNKNOWN FREQ (IN PM)
     Route: 065
     Dates: start: 20221031, end: 20230701
  3. ENZALUTAMIDE [Suspect]
     Active Substance: ENZALUTAMIDE
     Indication: Metastases to bone
     Dosage: UNKNOWN
     Route: 065
     Dates: start: 202403
  4. ENZALUTAMIDE [Suspect]
     Active Substance: ENZALUTAMIDE
     Dosage: UNK
  5. TAMSULOSIN [Concomitant]
     Active Substance: TAMSULOSIN
     Indication: Product used for unknown indication
     Dosage: UNKNOWN
     Route: 065

REACTIONS (16)
  - Pain [Not Recovered/Not Resolved]
  - Hypersomnia [Unknown]
  - Breast pain [Unknown]
  - Breast tenderness [Unknown]
  - Hypotonia [Unknown]
  - Alopecia [Unknown]
  - Fatigue [Unknown]
  - Arthralgia [Unknown]
  - Gynaecomastia [Unknown]
  - Asthenia [Unknown]
  - Hot flush [Recovered/Resolved]
  - Prostatic specific antigen increased [Unknown]
  - Breast mass [Unknown]
  - Nipple pain [Unknown]
  - Urinary tract infection [Unknown]
  - Blood testosterone decreased [Recovering/Resolving]

NARRATIVE: CASE EVENT DATE: 20240402
